FAERS Safety Report 6254679-2 (Version None)
Quarter: 2009Q3

REPORT INFORMATION
  Report Type: 
  Country: None (occurrence: None)
  Receive Date: 20090702
  Receipt Date: 20090624
  Transmission Date: 20100115
  Serious: Yes (Other)
  Sender: FDA-Public Use
  Company Number: US-AVENTIS-200915361US

PATIENT
  Age: 73 Year
  Sex: Female

DRUGS (3)
  1. LANTUS [Suspect]
     Route: 058
     Dates: start: 20090610
  2. LANTUS [Suspect]
     Route: 058
     Dates: start: 20060101, end: 20090610
  3. OPTICLIK (INSULIN INJECTION PEN) [Suspect]
     Dates: start: 20060101

REACTIONS (7)
  - BLINDNESS [None]
  - DIPLOPIA [None]
  - GLYCOSYLATED HAEMOGLOBIN INCREASED [None]
  - INDURATION [None]
  - LACRIMATION INCREASED [None]
  - RETINAL DETACHMENT [None]
  - VISION BLURRED [None]
